FAERS Safety Report 18032555 (Version 3)
Quarter: 2021Q4

REPORT INFORMATION
  Report Type: Spontaneous
  Country: US (occurrence: US)
  Receive Date: 20200716
  Receipt Date: 20211126
  Transmission Date: 20220303
  Serious: No
  Sender: FDA-Public Use
  Company Number: US-VERTEX PHARMACEUTICALS-2020-014639

PATIENT
  Sex: Male

DRUGS (2)
  1. TRIKAFTA [Suspect]
     Active Substance: ELEXACAFTOR\IVACAFTOR\TEZACAFTOR
     Indication: Cystic fibrosis
     Dosage: 2 TABS EVERY MORNING, BID
     Route: 048
     Dates: start: 20200107
  2. BACTRIM [Suspect]
     Active Substance: SULFAMETHOXAZOLE\TRIMETHOPRIM
     Indication: Product used for unknown indication
     Dosage: UNK
     Route: 065
     Dates: start: 2020

REACTIONS (7)
  - Increased appetite [Unknown]
  - Poor quality sleep [Not Recovered/Not Resolved]
  - Insomnia [Recovering/Resolving]
  - Haemoptysis [Unknown]
  - Fatigue [Unknown]
  - Pain [Unknown]
  - Renal pain [Unknown]

NARRATIVE: CASE EVENT DATE: 20200101
